FAERS Safety Report 11690915 (Version 1)
Quarter: 2015Q4

REPORT INFORMATION
  Report Type: Spontaneous
  Country: US (occurrence: US)
  Receive Date: 20151102
  Receipt Date: 20151102
  Transmission Date: 20160304
  Serious: Yes (Hospitalization, Other)
  Sender: FDA-Public Use
  Company Number: US-BRISTOL-MYERS SQUIBB COMPANY-BMS-2015-073700

PATIENT
  Age: 70 Year
  Sex: Female
  Weight: 47 kg

DRUGS (1)
  1. OPDIVO [Suspect]
     Active Substance: NIVOLUMAB
     Indication: LUNG NEOPLASM MALIGNANT
     Dosage: 3 MG/KG, UNK
     Route: 065
     Dates: start: 20151014

REACTIONS (7)
  - Abdominal pain [Unknown]
  - Pupillary reflex impaired [Unknown]
  - Vision blurred [Unknown]
  - Loss of consciousness [Unknown]
  - Nausea [Unknown]
  - Varicella [Unknown]
  - Rash [Unknown]

NARRATIVE: CASE EVENT DATE: 20150817
